FAERS Safety Report 8580653 (Version 3)
Quarter: 2012Q4

REPORT INFORMATION
  Report Type: Spontaneous
  Country: None (occurrence: None)
  Receive Date: 20120522
  Receipt Date: 20120924
  Transmission Date: 20130627
  Serious: Yes (Hospitalization, Other)
  Sender: FDA-Public Use
  Company Number: AUR-APL-2012-02176

PATIENT
  Age: 73 Year
  Sex: Male

DRUGS (4)
  1. NAPROXEN [Suspect]
     Indication: ARTHRITIS
     Dosage: (500 MG,2 IN 1 D)
     Route: 048
     Dates: start: 20120401, end: 20120422
  2. NAPROXEN [Suspect]
     Indication: PROCEDURAL PAIN
     Dosage: (500 MG,2 IN 1 D)
     Route: 048
     Dates: start: 20120401, end: 20120422
  3. ACETAMINOPHEN AND CODEINE [Concomitant]
  4. HEPARIN LOW MOLECULAR WEIGHT(DALTEPARIN SODIUM) [Concomitant]

REACTIONS (9)
  - Abdominal pain [None]
  - Dizziness [None]
  - Duodenal ulcer [None]
  - Syncope [None]
  - Lethargy [None]
  - Pallor [None]
  - Faeces discoloured [None]
  - Small intestinal haemorrhage [None]
  - Haemoglobin decreased [None]
